FAERS Safety Report 24169443 (Version 1)
Quarter: 2024Q3

REPORT INFORMATION
  Report Type: Spontaneous
  Country: FR (occurrence: FR)
  Receive Date: 20240802
  Receipt Date: 20240802
  Transmission Date: 20241017
  Serious: Yes (Hospitalization)
  Sender: GE HEALTHCARE
  Company Number: None

PATIENT
  Age: 46 Year
  Sex: Female

DRUGS (3)
  1. VISIPAQUE [Suspect]
     Active Substance: IODIXANOL
     Indication: Skin test
     Dosage: 1 DF, TOTAL
     Route: 003
     Dates: start: 20240617, end: 20240617
  2. CEFTRIAXONE SODIUM [Suspect]
     Active Substance: CEFTRIAXONE SODIUM
     Indication: Colitis
     Dosage: 1 DF, TOTAL
     Route: 030
     Dates: start: 20240215, end: 20240215
  3. IOMERON [Suspect]
     Active Substance: IOMEPROL
     Indication: Skin test
     Dosage: 1 DF, TOTAL
     Route: 003
     Dates: start: 20240617, end: 20240617

REACTIONS (2)
  - Rash maculo-papular [Recovered/Resolved]
  - Skin test positive [Recovered/Resolved]

NARRATIVE: CASE EVENT DATE: 20240215
